FAERS Safety Report 10557872 (Version 2)
Quarter: 2014Q4

REPORT INFORMATION
  Report Type: Spontaneous
  Country: DE (occurrence: DE)
  Receive Date: 20141031
  Receipt Date: 20141104
  Transmission Date: 20150529
  Serious: Yes (Other)
  Sender: FDA-Public Use
  Company Number: DE-PFIZER INC-2014298485

PATIENT
  Age: 89 Year
  Sex: Female

DRUGS (3)
  1. RAMILICH [Suspect]
     Active Substance: RAMIPRIL
     Dosage: 10 MG, 2X/DAY
     Route: 048
     Dates: start: 201410
  2. BISOPROLOL [Concomitant]
     Active Substance: BISOPROLOL
     Dosage: UNK
  3. RAMILICH [Suspect]
     Active Substance: RAMIPRIL
     Dosage: 5 MG, 2X/DAY
     Route: 048
     Dates: end: 201410

REACTIONS (8)
  - Tremor [Not Recovered/Not Resolved]
  - Apathy [Not Recovered/Not Resolved]
  - Speech disorder [Not Recovered/Not Resolved]
  - Oral discomfort [Not Recovered/Not Resolved]
  - Circumstance or information capable of leading to medication error [Unknown]
  - Dysphagia [Not Recovered/Not Resolved]
  - Blood pressure fluctuation [Unknown]
  - Somnolence [Not Recovered/Not Resolved]

NARRATIVE: CASE EVENT DATE: 201410
